FAERS Safety Report 7693468-9 (Version None)
Quarter: 2011Q3

REPORT INFORMATION
  Report Type: 
  Country: None (occurrence: None)
  Receive Date: 20110819
  Receipt Date: 20110810
  Transmission Date: 20111222
  Serious: Yes (Other)
  Sender: FDA-Public Use
  Company Number: IE-US-EMD SERONO, INC.-7076438

PATIENT
  Sex: Female

DRUGS (1)
  1. REBIF [Suspect]
     Indication: SECONDARY PROGRESSIVE MULTIPLE SCLEROSIS
     Route: 058
     Dates: start: 20031117

REACTIONS (3)
  - MEMORY IMPAIRMENT [None]
  - SUICIDAL IDEATION [None]
  - DEPRESSION [None]
